FAERS Safety Report 17642317 (Version 1)
Quarter: 2020Q2

REPORT INFORMATION
  Report Type: Spontaneous
  Country: US (occurrence: US)
  Receive Date: 20200408
  Receipt Date: 20200408
  Transmission Date: 20200713
  Serious: Yes (Other)
  Sender: FDA-Public Use
  Company Number: US-ALLERGAN-1919753US

PATIENT
  Age: 22 Year
  Sex: Female
  Weight: 72.11 kg

DRUGS (2)
  1. LILETTA [Suspect]
     Active Substance: LEVONORGESTREL
     Indication: CONTRACEPTION
     Dosage: 52 MG, SINGLE
     Route: 015
     Dates: start: 20190423, end: 20190423
  2. ZITHROMAX [Concomitant]
     Active Substance: AZITHROMYCIN DIHYDRATE
     Indication: PRODUCT USED FOR UNKNOWN INDICATION
     Dosage: 1 DF, FOR 3 DAYS
     Route: 048
     Dates: start: 20190423

REACTIONS (3)
  - Procedural pain [Unknown]
  - Uterine perforation [Recovered/Resolved]
  - Uterine spasm [Unknown]

NARRATIVE: CASE EVENT DATE: 20190423
